FAERS Safety Report 6427496-8 (Version None)
Quarter: 2009Q4

REPORT INFORMATION
  Report Type: 
  Country: None (occurrence: None)
  Receive Date: 20091104
  Receipt Date: 20091026
  Transmission Date: 20100525
  Serious: Yes (Other)
  Sender: FDA-Public Use
  Company Number: PHEH2009US14528

PATIENT
  Sex: Male

DRUGS (1)
  1. EXJADE [Suspect]
     Dosage: 1500 UNK, QD
     Route: 048
     Dates: start: 20090219, end: 20091022

REACTIONS (3)
  - BLOOD URINE PRESENT [None]
  - PROTEINURIA [None]
  - RENAL DISORDER [None]
